FAERS Safety Report 11984911 (Version 2)
Quarter: 2016Q1

REPORT INFORMATION
  Report Type: Spontaneous
  Country: US (occurrence: US)
  Receive Date: 20160201
  Receipt Date: 20160308
  Transmission Date: 20160526
  Serious: No
  Sender: FDA-Public Use
  Company Number: US-LEO PHARMA-239836

PATIENT
  Age: 32 Year
  Sex: Female

DRUGS (1)
  1. PICATO [Suspect]
     Active Substance: INGENOL MEBUTATE
     Indication: ACTINIC KERATOSIS

REACTIONS (4)
  - Application site scab [Recovered/Resolved]
  - Solar lentigo [Recovered/Resolved]
  - Application site erythema [Not Recovered/Not Resolved]
  - Application site pustules [Recovered/Resolved]
